FAERS Safety Report 4649713-7 (Version None)
Quarter: 2005Q2

REPORT INFORMATION
  Report Type: 
  Country: None (occurrence: None)
  Receive Date: 20050427
  Receipt Date: 20050406
  Transmission Date: 20051028
  Serious: No
  Sender: FDA-Public Use
  Company Number: US_0411107538

PATIENT
  Age: 51 Year
  Sex: Female
  Weight: 73 kg

DRUGS (12)
  1. ZYPREXA [Suspect]
     Indication: BIPOLAR DISORDER
     Dosage: 30 MG
     Dates: start: 20000412, end: 20050308
  2. SYMPYAX [Concomitant]
  3. GLIMEPERIDE/METFORMIN [Concomitant]
  4. LAMICTAL [Concomitant]
  5. LORAZEPAM [Concomitant]
  6. BENZTROPINE [Concomitant]
  7. LITHIUM CARBONATE [Concomitant]
  8. DIVALPROEX SODIUM [Concomitant]
  9. TRAZADONE (TRAZODONE) [Concomitant]
  10. ESCITALOPRAM [Concomitant]
  11. TIAGABINE [Concomitant]
  12. LOXAPINE [Concomitant]

REACTIONS (11)
  - BLOOD CHOLESTEROL INCREASED [None]
  - BLOOD GLUCOSE INCREASED [None]
  - COUGH [None]
  - DECREASED APPETITE [None]
  - DIABETIC NEUROPATHY [None]
  - HAEMOPTYSIS [None]
  - HAEMORRHOIDAL HAEMORRHAGE [None]
  - MOOD SWINGS [None]
  - SEDATION [None]
  - TREATMENT NONCOMPLIANCE [None]
  - TREMOR [None]
